FAERS Safety Report 8557282-4 (Version None)
Quarter: 2012Q3

REPORT INFORMATION
  Report Type: 
  Country: None (occurrence: None)
  Receive Date: 20120801
  Receipt Date: 20120717
  Transmission Date: 20120928
  Serious: No
  Sender: FDA-Public Use
  Company Number: US-ASTRAZENECA-2012SE49926

PATIENT
  Sex: Female

DRUGS (1)
  1. VIMOVO [Suspect]
     Indication: BACK PAIN
     Route: 048
     Dates: start: 20110101, end: 20110101

REACTIONS (3)
  - LABORATORY TEST ABNORMAL [None]
  - INFERTILITY [None]
  - HORMONE LEVEL ABNORMAL [None]
